FAERS Safety Report 11755238 (Version 1)
Quarter: 2015Q4

REPORT INFORMATION
  Report Type: Report from Study
  Country: BR (occurrence: BR)
  Receive Date: 20151119
  Receipt Date: 20151119
  Transmission Date: 20160304
  Serious: Yes (Other)
  Sender: FDA-Public Use
  Company Number: BR-ABBVIE-15K-020-1501103-00

PATIENT
  Age: 62 Year
  Sex: Female
  Weight: 64 kg

DRUGS (2)
  1. HUMIRA [Suspect]
     Active Substance: ADALIMUMAB
     Indication: RHEUMATOID ARTHRITIS
     Route: 058
     Dates: start: 20120101
  2. METHOTREXATE [Concomitant]
     Active Substance: METHOTREXATE
     Indication: ARTHRITIS
     Route: 048

REACTIONS (8)
  - Anaemia [Unknown]
  - Weight increased [Unknown]
  - Blood cholesterol increased [Not Recovered/Not Resolved]
  - Abasia [Recovered/Resolved]
  - Psychiatric symptom [Not Recovered/Not Resolved]
  - Osteoporosis [Unknown]
  - Foot deformity [Recovered/Resolved]
  - Osteoarthritis [Unknown]

NARRATIVE: CASE EVENT DATE: 201505
